FAERS Safety Report 8906330 (Version 1)
Quarter: 2012Q4

REPORT INFORMATION
  Report Type: Spontaneous
  Country: US (occurrence: None)
  Receive Date: 20121112
  Receipt Date: 20121112
  Transmission Date: 20130627
  Serious: No
  Sender: FDA-Public Use
  Company Number: None

PATIENT

DRUGS (1)
  1. EXTRA STRENGTH HEADACHE RELIEF [Suspect]
     Indication: HEADACHE
     Route: 048
     Dates: start: 20121013, end: 20121016

REACTIONS (9)
  - Hypoaesthesia eye [None]
  - Intraocular pressure increased [None]
  - Heart rate increased [None]
  - Blood pressure increased [None]
  - Anxiety [None]
  - Feeling abnormal [None]
  - Pollakiuria [None]
  - Product quality issue [None]
  - Product formulation issue [None]
